FAERS Safety Report 7119214-5 (Version None)
Quarter: 2010Q4

REPORT INFORMATION
  Report Type: 
  Country: None (occurrence: None)
  Receive Date: 20101123
  Receipt Date: 20101118
  Transmission Date: 20110411
  Serious: Yes (Other)
  Sender: FDA-Public Use
  Company Number: US-BAYER-201041711NA

PATIENT
  Age: 65 Year
  Sex: Female

DRUGS (2)
  1. AVELOX [Suspect]
     Indication: PNEUMONIA
     Dosage: TOTAL DAILY DOSE: 400 MG  UNIT DOSE: 400 MG
     Route: 048
     Dates: start: 20101112, end: 20101113
  2. ZIAC [Concomitant]
     Indication: BLOOD PRESSURE ABNORMAL

REACTIONS (3)
  - DEHYDRATION [None]
  - PARAESTHESIA [None]
  - PNEUMONIA [None]
